FAERS Safety Report 5891998-3 (Version None)
Quarter: 2008Q3

REPORT INFORMATION
  Report Type: 
  Country: None (occurrence: None)
  Receive Date: 20080922
  Receipt Date: 20080912
  Transmission Date: 20090109
  Serious: Yes (Hospitalization)
  Sender: FDA-Public Use
  Company Number: CH-ABBOTT-08P-151-0476360-00

PATIENT
  Age: 18 Year
  Sex: Female
  Weight: 60 kg

DRUGS (4)
  1. AKINETON [Suspect]
     Indication: DRUG USE FOR UNKNOWN INDICATION
     Route: 048
     Dates: start: 20070101
  2. PREGABALIN [Suspect]
     Indication: DRUG USE FOR UNKNOWN INDICATION
     Route: 048
     Dates: start: 20080421, end: 20080428
  3. BACLOFEN [Suspect]
     Indication: DYSTONIA
     Route: 048
     Dates: start: 20070101
  4. ACETYLSALICYLIC ACID SRT [Concomitant]
     Indication: DRUG USE FOR UNKNOWN INDICATION
     Route: 048
     Dates: start: 20050101

REACTIONS (1)
  - STATUS EPILEPTICUS [None]
